FAERS Safety Report 20993629 (Version 1)
Quarter: 2022Q2

REPORT INFORMATION
  Report Type: Report from Study
  Country: GT (occurrence: GT)
  Receive Date: 20220622
  Receipt Date: 20220622
  Transmission Date: 20220720
  Serious: Yes (Other)
  Sender: FDA-Public Use
  Company Number: GT-NOVARTISPH-NVSC2022GT139503

PATIENT
  Age: 63 Year
  Sex: Male

DRUGS (2)
  1. EXFORGE [Suspect]
     Active Substance: AMLODIPINE BESYLATE\VALSARTAN
     Indication: Product used for unknown indication
     Dosage: UNK, 5/160 MG, STARTED APPROXIMATELY 10 YEARS AGO
     Route: 065
     Dates: end: 202201
  2. EXFORGE [Suspect]
     Active Substance: AMLODIPINE BESYLATE\VALSARTAN
     Dosage: UNK, 10/320 MG
     Route: 065
     Dates: start: 202201

REACTIONS (3)
  - Diabetes mellitus [Unknown]
  - Blood pressure increased [Unknown]
  - Wrong technique in product usage process [Unknown]
